FAERS Safety Report 14774005 (Version 2)
Quarter: 2025Q1

REPORT INFORMATION
  Report Type: Report from Study
  Country: ES (occurrence: ES)
  Receive Date: 20180418
  Receipt Date: 20250310
  Transmission Date: 20250409
  Serious: Yes (Life-Threatening, Hospitalization, Other)
  Sender: AUROBINDO
  Company Number: ES-AUROBINDO-AUR-APL-2018-020548

PATIENT
  Age: 3 Year
  Sex: Female

DRUGS (3)
  1. RANITIDINE [Suspect]
     Active Substance: RANITIDINE
     Indication: Product used for unknown indication
     Route: 065
  2. ACETAMINOPHEN [Suspect]
     Active Substance: ACETAMINOPHEN
     Indication: Product used for unknown indication
     Route: 065
  3. CEFTRIAXONE [Suspect]
     Active Substance: CEFTRIAXONE
     Indication: Salmonellosis
     Dosage: 400 MILLIGRAM, 3 TIMES A DAY
     Route: 065

REACTIONS (2)
  - Agranulocytosis [Recovered/Resolved]
  - Toxicity to various agents [Recovered/Resolved]
